FAERS Safety Report 9072740 (Version 1)
Quarter: 2013Q1

REPORT INFORMATION
  Report Type: Report from Study
  Country: US (occurrence: US)
  Receive Date: 20130128
  Receipt Date: 20130128
  Transmission Date: 20140127
  Serious: No
  Sender: FDA-Public Use
  Company Number: US-ABBOTT-12P-163-0916013-00

PATIENT
  Sex: Female

DRUGS (1)
  1. HUMIRA 40 MG/ 0.8 ML PRE-FILLED SYRINGE [Suspect]
     Indication: PSORIATIC ARTHROPATHY
     Route: 058
     Dates: start: 20110721, end: 20120131

REACTIONS (4)
  - Muscle injury [Recovering/Resolving]
  - Nerve injury [Recovering/Resolving]
  - Movement disorder [Recovering/Resolving]
  - Viral infection [Unknown]
